FAERS Safety Report 8522625-4 (Version None)
Quarter: 2012Q3

REPORT INFORMATION
  Report Type: 
  Country: None (occurrence: None)
  Receive Date: 20120719
  Receipt Date: 20120713
  Transmission Date: 20120928
  Serious: Yes (Other)
  Sender: FDA-Public Use
  Company Number: TR-GILEAD-2012-0057412

PATIENT
  Age: 66 Year
  Sex: Male

DRUGS (2)
  1. EFAVIRENZ [Concomitant]
     Dosage: 600 MG, UNK
  2. TRUVADA [Suspect]
     Indication: HIV INFECTION
     Dosage: 1 DF, QD

REACTIONS (1)
  - OSTEOPOROSIS [None]
